FAERS Safety Report 15003729 (Version 1)
Quarter: 2018Q2

REPORT INFORMATION
  Report Type: Spontaneous
  Country: CA (occurrence: CA)
  Receive Date: 20180613
  Receipt Date: 20180613
  Transmission Date: 20180711
  Serious: Yes (Hospitalization)
  Sender: FDA-Public Use
  Company Number: CA-APOTEX-2018AP015733

PATIENT
  Age: 56 Year
  Sex: Male

DRUGS (7)
  1. GLICLAZIDE [Suspect]
     Active Substance: GLICLAZIDE
     Indication: TYPE 2 DIABETES MELLITUS
     Dosage: 90 MG, DAILY
     Route: 048
  2. INSULIN LISPRO [Concomitant]
     Active Substance: INSULIN LISPRO
     Indication: TYPE 2 DIABETES MELLITUS
     Dosage: 6 UNITS WITH MEALS
     Route: 058
  3. FLUCONAZOLE. [Suspect]
     Active Substance: FLUCONAZOLE
     Indication: PNEUMONIA FUNGAL
     Dosage: 480 MG, DAILY
     Route: 048
  4. METFORMIN [Concomitant]
     Active Substance: METFORMIN HYDROCHLORIDE
     Indication: TYPE 2 DIABETES MELLITUS
     Dosage: 2500 MG, DAILY IN DIVIDED DOSES
     Route: 048
  5. PREDNISONE. [Concomitant]
     Active Substance: PREDNISONE
     Indication: IMMUNOSUPPRESSION
     Dosage: 5 MG, DAILY
     Route: 048
  6. VORICONAZOLE. [Suspect]
     Active Substance: VORICONAZOLE
     Indication: PNEUMONIA FUNGAL
     Dosage: 200 MG, BID
     Route: 048
  7. INSULIN GLARGINE [Concomitant]
     Active Substance: INSULIN GLARGINE
     Indication: TYPE 2 DIABETES MELLITUS
     Dosage: 18 UNITS, Q.H.S
     Route: 058

REACTIONS (7)
  - Toxicity to various agents [Unknown]
  - Hypoglycaemia [Recovered/Resolved]
  - Visual impairment [Unknown]
  - Enzyme inhibition [Unknown]
  - Drug interaction [Unknown]
  - Hallucination [Unknown]
  - Lethargy [Unknown]
